FAERS Safety Report 6304230-3 (Version None)
Quarter: 2009Q3

REPORT INFORMATION
  Report Type: 
  Country: None (occurrence: None)
  Receive Date: 20090811
  Receipt Date: 20090730
  Transmission Date: 20100115
  Serious: Yes (Hospitalization, Other)
  Sender: FDA-Public Use
  Company Number: US-JNJFOC-20090710003

PATIENT
  Sex: Female
  Weight: 53.98 kg

DRUGS (8)
  1. REMICADE [Suspect]
     Indication: CROHN'S DISEASE
     Route: 042
  2. REMICADE [Suspect]
     Indication: RHEUMATOID ARTHRITIS
     Dosage: 38 INFUSIONS IN TOTAL
     Route: 042
  3. ALPRAZOLAM [Concomitant]
     Indication: ANXIETY
     Route: 048
  4. FOLIC ACID [Concomitant]
     Route: 048
  5. NEXIUM [Concomitant]
     Route: 048
  6. OXYCODONE HCL [Concomitant]
     Dosage: 1-2 TABLETS TWICE DAILY
     Route: 048
  7. RANITIDINE [Concomitant]
  8. TYLENOL (CAPLET) [Concomitant]

REACTIONS (8)
  - DYSPHAGIA [None]
  - GASTROOESOPHAGEAL REFLUX DISEASE [None]
  - HISTOPLASMOSIS [None]
  - HOSPITALISATION [None]
  - ILEOSTOMY [None]
  - ONYCHOMYCOSIS [None]
  - OROPHARYNGEAL CANDIDIASIS [None]
  - PRODUCTIVE COUGH [None]
